FAERS Safety Report 23218184 (Version 2)
Quarter: 2023Q4

REPORT INFORMATION
  Report Type: Spontaneous
  Country: US (occurrence: US)
  Receive Date: 20231122
  Receipt Date: 20231213
  Transmission Date: 20240109
  Serious: No
  Sender: FDA-Public Use
  Company Number: US-LUPIN PHARMACEUTICALS INC.-2023-10304

PATIENT

DRUGS (1)
  1. TIOTROPIUM BROMIDE [Suspect]
     Active Substance: TIOTROPIUM BROMIDE
     Indication: Chronic obstructive pulmonary disease
     Dosage: UNK UNK, QD (ONE CAPSULE ONCE A DAY)
     Dates: start: 20231107

REACTIONS (7)
  - Drug dose omission by device [Unknown]
  - Device use issue [Unknown]
  - Device delivery system issue [Unknown]
  - Device issue [Unknown]
  - Device malfunction [Unknown]
  - Product packaging quantity issue [Unknown]
  - No adverse event [Unknown]
